FAERS Safety Report 21985083 (Version 1)
Quarter: 2023Q1

REPORT INFORMATION
  Report Type: Spontaneous
  Country: BR (occurrence: BR)
  Receive Date: 20230213
  Receipt Date: 20230213
  Transmission Date: 20230417
  Serious: Yes (Other)
  Sender: FDA-Public Use
  Company Number: BR-002147023-NVSC2023BR008838

PATIENT
  Sex: Male

DRUGS (3)
  1. METHYLPHENIDATE HYDROCHLORIDE [Suspect]
     Active Substance: METHYLPHENIDATE HYDROCHLORIDE
     Indication: Autism spectrum disorder
     Dosage: 30 MG (SINCE 3 YEARS)
     Route: 065
  2. METHYLPHENIDATE HYDROCHLORIDE [Suspect]
     Active Substance: METHYLPHENIDATE HYDROCHLORIDE
     Dosage: 20 MG (30 TABLETS)
     Route: 065
  3. METHYLPHENIDATE HYDROCHLORIDE [Suspect]
     Active Substance: METHYLPHENIDATE HYDROCHLORIDE
     Dosage: 30 MG (30 TABLETS)
     Route: 065

REACTIONS (9)
  - Intentional self-injury [Unknown]
  - Irritability [Unknown]
  - Disturbance in attention [Unknown]
  - Hunger [Unknown]
  - Anger [Unknown]
  - Product use in unapproved indication [Unknown]
  - Product availability issue [Unknown]
  - Therapeutic response shortened [Unknown]
  - Drug ineffective [Unknown]
